FAERS Safety Report 16558865 (Version 3)
Quarter: 2019Q3

REPORT INFORMATION
  Report Type: Spontaneous
  Country: US (occurrence: US)
  Receive Date: 20190711
  Receipt Date: 20190819
  Transmission Date: 20191004
  Serious: No
  Sender: FDA-Public Use
  Company Number: US-JNJFOC-20190709199

PATIENT
  Age: 35 Year
  Sex: Male
  Weight: 75.82 kg

DRUGS (1)
  1. RISPERDAL CONSTA [Suspect]
     Active Substance: RISPERIDONE
     Indication: SCHIZOPHRENIA
     Route: 030

REACTIONS (3)
  - Product container issue [Unknown]
  - Product dose omission [Unknown]
  - Product expiration date issue [Unknown]

NARRATIVE: CASE EVENT DATE: 20190702
